FAERS Safety Report 5023280-0 (Version None)
Quarter: 2006Q2

REPORT INFORMATION
  Report Type: 
  Country: None (occurrence: None)
  Receive Date: 20060612
  Receipt Date: 20060602
  Transmission Date: 20061013
  Serious: Yes (Hospitalization)
  Sender: FDA-Public Use
  Company Number: PHRM2006FR01703

PATIENT
  Age: 63 Year
  Sex: Male

DRUGS (3)
  1. FRACTAL [Suspect]
     Dosage: 80 MG/DAY
     Route: 048
     Dates: start: 20050701, end: 20060227
  2. OFLOCET [Suspect]
     Indication: STAPHYLOCOCCAL INFECTION
     Dosage: 200 MG, UNK
     Route: 048
     Dates: start: 20060116, end: 20060226
  3. FUCIDINE CAP [Concomitant]
     Indication: STAPHYLOCOCCAL INFECTION
     Dosage: 250 MG, UNK
     Route: 048
     Dates: start: 20060116, end: 20060226

REACTIONS (10)
  - AREFLEXIA [None]
  - ASTHENIA [None]
  - BLOOD CREATINE PHOSPHOKINASE INCREASED [None]
  - GUILLAIN-BARRE SYNDROME [None]
  - HIP SURGERY [None]
  - MUSCULAR WEAKNESS [None]
  - RENAL FAILURE ACUTE [None]
  - RENAL TUBULAR NECROSIS [None]
  - RHABDOMYOLYSIS [None]
  - STAPHYLOCOCCAL INFECTION [None]
